FAERS Safety Report 6522587-5 (Version None)
Quarter: 2009Q4

REPORT INFORMATION
  Report Type: 
  Country: None (occurrence: None)
  Receive Date: 20091230
  Receipt Date: 20091221
  Transmission Date: 20100525
  Serious: Yes (Hospitalization)
  Sender: FDA-Public Use
  Company Number: US-AMGEN-QUU349871

PATIENT
  Sex: Female

DRUGS (6)
  1. ENBREL [Suspect]
     Indication: RHEUMATOID ARTHRITIS
     Route: 058
     Dates: start: 20090301, end: 20090323
  2. METHOTREXATE [Concomitant]
     Route: 048
  3. ARTHROTEC [Concomitant]
     Dates: start: 20090306
  4. MEDROL [Concomitant]
  5. SYNTHROID [Concomitant]
  6. TRAMADOL HCL [Concomitant]

REACTIONS (10)
  - DEEP VEIN THROMBOSIS [None]
  - DEHYDRATION [None]
  - GASTROENTERITIS [None]
  - INFLUENZA [None]
  - INJECTION SITE PAIN [None]
  - INJECTION SITE PRURITUS [None]
  - INJECTION SITE RASH [None]
  - INJECTION SITE REACTION [None]
  - PULMONARY EMBOLISM [None]
  - PYREXIA [None]
